FAERS Safety Report 13447196 (Version 1)
Quarter: 2017Q2

REPORT INFORMATION
  Report Type: Spontaneous
  Country: US (occurrence: US)
  Receive Date: 20170414
  Receipt Date: 20170414
  Transmission Date: 20170830
  Serious: No
  Sender: FDA-Public Use
  Company Number: None

PATIENT
  Age: 58 Year
  Sex: Male

DRUGS (1)
  1. TEMOZOLOMIDE 140MG SANDOZ [Suspect]
     Active Substance: TEMOZOLOMIDE
     Indication: BRAIN NEOPLASM MALIGNANT
     Dosage: 420MG FOR 5 CONSECUTIVES DAYS EVERY MONTH BY MOUTH
     Route: 048
     Dates: start: 20170320

REACTIONS (2)
  - Weight decreased [None]
  - Dysgeusia [None]

NARRATIVE: CASE EVENT DATE: 20170301
